FAERS Safety Report 5578571-1 (Version None)
Quarter: 2007Q4

REPORT INFORMATION
  Report Type: 
  Country: None (occurrence: None)
  Receive Date: 20071227
  Receipt Date: 20060511
  Transmission Date: 20080405
  Serious: Yes (Other)
  Sender: FDA-Public Use
  Company Number: 2006VX001883

PATIENT
  Age: 28 Year
  Sex: Male

DRUGS (1)
  1. VIRAZOLE [Suspect]
     Dosage: 1.20 GM;QD;

REACTIONS (2)
  - ANAEMIA [None]
  - JAUNDICE [None]
